FAERS Safety Report 7950865-1 (Version None)
Quarter: 2011Q4

REPORT INFORMATION
  Report Type: 
  Country: None (occurrence: None)
  Receive Date: 20111201
  Receipt Date: 20111123
  Transmission Date: 20120403
  Serious: Yes (Other)
  Sender: FDA-Public Use
  Company Number: US-BIOGENIDEC-2010BI030887

PATIENT
  Age: 43 Year
  Sex: Female

DRUGS (7)
  1. CRESTOR [Concomitant]
     Indication: MYOCARDIAL INFARCTION
  2. TOPAMAX [Concomitant]
     Indication: CONVULSION
     Dates: end: 20100801
  3. AVONEX [Suspect]
     Route: 030
     Dates: start: 20060201
  4. AVONEX [Suspect]
     Indication: MULTIPLE SCLEROSIS
     Route: 030
     Dates: start: 20100301, end: 20111109
  5. AVONEX [Suspect]
     Route: 030
     Dates: start: 20100301, end: 20111109
  6. AVONEX [Suspect]
     Route: 030
     Dates: start: 20100301, end: 20111109
  7. COPAXONE [Concomitant]
     Indication: MULTIPLE SCLEROSIS
     Dates: start: 20100501, end: 20100501

REACTIONS (17)
  - MYOCARDIAL INFARCTION [None]
  - CONVULSION [None]
  - LUNG DISORDER [None]
  - GRAND MAL CONVULSION [None]
  - EYE DISORDER [None]
  - COLOUR BLINDNESS ACQUIRED [None]
  - HEMIPLEGIA [None]
  - PNEUMONIA [None]
  - VISUAL IMPAIRMENT [None]
  - TRANSIENT ISCHAEMIC ATTACK [None]
  - LIVER DISORDER [None]
  - HEADACHE [None]
  - ADVERSE EVENT [None]
  - LOSS OF CONSCIOUSNESS [None]
  - DISTURBANCE IN ATTENTION [None]
  - INJECTION SITE HAEMORRHAGE [None]
  - BACK PAIN [None]
